FAERS Safety Report 6998115-7 (Version None)
Quarter: 2010Q3

REPORT INFORMATION
  Report Type: 
  Country: None (occurrence: None)
  Receive Date: 20100920
  Receipt Date: 20091103
  Transmission Date: 20110219
  Serious: No
  Sender: FDA-Public Use
  Company Number: US-ASTRAZENECA-2009SE16596

PATIENT
  Age: 30 Year
  Sex: Male
  Weight: 108.9 kg

DRUGS (3)
  1. SEROQUEL [Suspect]
     Indication: DEPRESSION
     Route: 048
     Dates: start: 20030601, end: 20070601
  2. EFFEXOR [Concomitant]
     Dates: start: 20030101
  3. REMERON [Concomitant]
     Dates: start: 20030101

REACTIONS (3)
  - GASTRIC DISORDER [None]
  - TYPE 2 DIABETES MELLITUS [None]
  - UPPER LIMB FRACTURE [None]
